FAERS Safety Report 20292134 (Version 2)
Quarter: 2022Q1

REPORT INFORMATION
  Report Type: Spontaneous
  Country: AR (occurrence: AR)
  Receive Date: 20220104
  Receipt Date: 20220124
  Transmission Date: 20220423
  Serious: Yes (Hospitalization, Other)
  Sender: FDA-Public Use
  Company Number: AR-PFIZER INC-202101841187

PATIENT
  Age: 65 Year
  Sex: Female

DRUGS (2)
  1. IBRANCE [Suspect]
     Active Substance: PALBOCICLIB
     Indication: Breast cancer metastatic
     Dosage: 100 MG, 3X1 SCHEME, DAILY
     Dates: start: 20210527
  2. FULVESTRANT [Concomitant]
     Active Substance: FULVESTRANT

REACTIONS (2)
  - Stent placement [Unknown]
  - Malaise [Unknown]

NARRATIVE: CASE EVENT DATE: 20211201
